FAERS Safety Report 12441302 (Version 1)
Quarter: 2016Q2

REPORT INFORMATION
  Report Type: Spontaneous
  Country: US (occurrence: None)
  Receive Date: 20160603
  Receipt Date: 20160603
  Transmission Date: 20160815
  Serious: Yes (Death)
  Sender: FDA-Public Use
  Company Number: CA-ALSI-201300314

PATIENT
  Age: 91 Year
  Sex: Male

DRUGS (1)
  1. OXYGEN USP OXYGEN [Suspect]
     Active Substance: OXYGEN
     Indication: PRODUCT USED FOR UNKNOWN INDICATION
     Route: 055

REACTIONS (1)
  - Death [None]

NARRATIVE: CASE EVENT DATE: 20120910
